FAERS Safety Report 22234106 (Version 1)
Quarter: 2023Q2

REPORT INFORMATION
  Report Type: Spontaneous
  Country: US (occurrence: None)
  Receive Date: 20230420
  Receipt Date: 20230420
  Transmission Date: 20230722
  Serious: No
  Sender: FDA-Public Use
  Company Number: US-ROCHE-3163240

PATIENT
  Age: 70 Year
  Sex: Male
  Weight: 105.78 kg

DRUGS (24)
  1. ESBRIET [Suspect]
     Active Substance: PIRFENIDONE
     Indication: Interstitial lung disease
     Dosage: TAKE 1 CAPSULE 3 TIMES DAILY 1 WEEK, THEN 2 CAPSULES 3 TIMES DAILY 1 WEEK, THEN 3 CAPSULES 3 TIMES D
     Route: 048
     Dates: start: 20220629, end: 20220816
  2. ESBRIET [Suspect]
     Active Substance: PIRFENIDONE
     Indication: Fibrosis
     Dosage: TAKE 1 CAPSULE 3 TIMES DAILY 1 WEEK, THEN 2 CAPSULES 3 TIMES DAILY 1 WEEK, THEN 3 CAPSULES 3 TIMES D
     Route: 048
     Dates: start: 20220721
  3. WARFARIN [Concomitant]
     Active Substance: WARFARIN
     Route: 048
  4. TAMSULOSIN [Concomitant]
     Active Substance: TAMSULOSIN
  5. STOOL SOFTENER (DOCUSATE) [Concomitant]
     Active Substance: DOCUSATE
  6. SPIRONOLACTONE [Concomitant]
     Active Substance: SPIRONOLACTONE
  7. OMEPRAZOLE [Concomitant]
     Active Substance: OMEPRAZOLE
  8. MEXILETINE [Concomitant]
     Active Substance: MEXILETINE
  9. METOPROLOL [Concomitant]
     Active Substance: METOPROLOL
  10. FUROSEMIDE [Concomitant]
     Active Substance: FUROSEMIDE
  11. CAPTOPRIL [Concomitant]
     Active Substance: CAPTOPRIL
  12. ATORVASTATIN [Concomitant]
     Active Substance: ATORVASTATIN
  13. ASPIRIN [Concomitant]
     Active Substance: ASPIRIN
  14. ACETAMINOPHEN [Concomitant]
     Active Substance: ACETAMINOPHEN
  15. ALBUTEROL [Concomitant]
     Active Substance: ALBUTEROL
  16. BREZTRI [Concomitant]
     Active Substance: BUDESONIDE\FORMOTEROL\GLYCOPYRROLATE
  17. CLOPIDOGREL [Concomitant]
     Active Substance: CLOPIDOGREL BISULFATE
  18. FLOMAX [Concomitant]
     Active Substance: TAMSULOSIN HYDROCHLORIDE
  19. FLONASE ALLERGY RELIEF [Concomitant]
     Active Substance: FLUTICASONE PROPIONATE
  20. FLUTICASONE PROPIONATE [Concomitant]
     Active Substance: FLUTICASONE PROPIONATE
  21. NITROGLYCERIN [Concomitant]
     Active Substance: NITROGLYCERIN
  22. NYSTATIN [Concomitant]
     Active Substance: NYSTATIN
  23. ONDANSETRON [Concomitant]
     Active Substance: ONDANSETRON
  24. ULTRAVATE [Concomitant]
     Active Substance: HALOBETASOL PROPIONATE

REACTIONS (3)
  - Nausea [Recovered/Resolved]
  - Vomiting [Recovered/Resolved]
  - Diarrhoea [Recovered/Resolved]

NARRATIVE: CASE EVENT DATE: 20220808
